FAERS Safety Report 5319632-1 (Version None)
Quarter: 2007Q2

REPORT INFORMATION
  Report Type: 
  Country: None (occurrence: None)
  Receive Date: 20070503
  Receipt Date: 20070424
  Transmission Date: 20071010
  Serious: Yes (Life-Threatening)
  Sender: FDA-Public Use
  Company Number: GXKR2007GB03740

PATIENT
  Age: 63 Year
  Sex: Male
  Weight: 137 kg

DRUGS (9)
  1. WARFARIN SODIUM [Suspect]
     Indication: ATRIAL FIBRILLATION
     Dosage: 5 MG, QD, ORAL
     Route: 048
     Dates: start: 20010615
  2. XENICAL [Suspect]
     Dosage: 120 MG, TID, ORAL
     Route: 048
     Dates: start: 20070125, end: 20070301
  3. AMITRIPTYLINE HCL [Concomitant]
  4. ATENOLOL [Concomitant]
  5. CARBIMAZOLE (CARBIMAZOLE) [Concomitant]
  6. DIGOXIN [Concomitant]
  7. ISPAGHULA (ISPAGHULA, PLANTAGO OVATA) [Concomitant]
  8. LACTULOSE [Concomitant]
  9. TRAMADOL HCL [Concomitant]

REACTIONS (1)
  - INTERNATIONAL NORMALISED RATIO INCREASED [None]
